FAERS Safety Report 7406675-7 (Version None)
Quarter: 2011Q2

REPORT INFORMATION
  Report Type: 
  Country: None (occurrence: None)
  Receive Date: 20110411
  Receipt Date: 20110401
  Transmission Date: 20111010
  Serious: Yes (Hospitalization)
  Sender: FDA-Public Use
  Company Number: FR-PFIZER INC-2011072431

PATIENT
  Age: 64 Year
  Sex: Male

DRUGS (3)
  1. CELEBREX [Suspect]
     Dosage: UNK
     Route: 048
     Dates: end: 20090401
  2. PIROXICAM [Concomitant]
     Route: 048
  3. DEROXAT [Concomitant]
     Dosage: 20 MG, UNK
     Route: 048

REACTIONS (3)
  - BILIARY CYST [None]
  - PANCREATITIS ACUTE [None]
  - PAIN [None]
